FAERS Safety Report 5209755-X (Version None)
Quarter: 2006Q4

REPORT INFORMATION
  Report Type: 
  Country: None (occurrence: None)
  Receive Date: 20061128
  Receipt Date: 20051216
  Transmission Date: 20070319
  Serious: Yes (Other)
  Sender: FDA-Public Use
  Company Number: 2005165489

PATIENT
  Age: 58 Year
  Sex: Male
  Weight: 97.0698 kg

DRUGS (6)
  1. TIKOSYN [Suspect]
     Indication: ATRIAL FIBRILLATION
     Dosage: 1000 MCG (500 MCG, 2 IN 1 D), ORAL
     Route: 048
     Dates: start: 20051130
  2. BACTRIM [Concomitant]
  3. LIPITOR [Concomitant]
  4. PROPECIA [Concomitant]
  5. VITAMIN E [Concomitant]
  6. DIAZEPAM [Concomitant]

REACTIONS (3)
  - ASTHENIA [None]
  - ELECTROCARDIOGRAM QT PROLONGED [None]
  - VENTRICULAR EXTRASYSTOLES [None]
